FAERS Safety Report 6994430-1 (Version None)
Quarter: 2010Q3

REPORT INFORMATION
  Report Type: 
  Country: None (occurrence: None)
  Receive Date: 20100917
  Receipt Date: 20100908
  Transmission Date: 20110219
  Serious: Yes (Hospitalization, Other)
  Sender: FDA-Public Use
  Company Number: US-JNJFOC-20100901147

PATIENT
  Sex: Female
  Weight: 74.4 kg

DRUGS (11)
  1. BLINDED; GOLIMUMA [Suspect]
     Route: 058
  2. BLINDED; GOLIMUMA [Suspect]
     Indication: RHEUMATOID ARTHRITIS
     Route: 058
  3. YAZ [Concomitant]
     Indication: CONTRACEPTION
  4. ALEVE (CAPLET) [Concomitant]
     Indication: PAIN
  5. ADVIL LIQUI-GELS [Concomitant]
     Indication: ARTHRALGIA
  6. FOLIC ACID [Concomitant]
     Indication: RHEUMATOID ARTHRITIS
  7. PREDNISONE [Concomitant]
     Indication: RHEUMATOID ARTHRITIS
  8. METHOTREXATE [Concomitant]
     Indication: RHEUMATOID ARTHRITIS
  9. HUMIRA [Concomitant]
     Indication: RHEUMATOID ARTHRITIS
  10. WAL-TUSSIN [Concomitant]
  11. NYQUIL [Concomitant]

REACTIONS (1)
  - CELLULITIS [None]
